FAERS Safety Report 19303967 (Version 2)
Quarter: 2021Q2

REPORT INFORMATION
  Report Type: Report from Study
  Country: US (occurrence: US)
  Receive Date: 20210525
  Receipt Date: 20210616
  Transmission Date: 20210717
  Serious: Yes (Other)
  Sender: FDA-Public Use
  Company Number: NVSC2021US113290

PATIENT
  Sex: Male

DRUGS (1)
  1. ENTRESTO [Suspect]
     Active Substance: SACUBITRIL\VALSARTAN
     Indication: PRODUCT USED FOR UNKNOWN INDICATION
     Dosage: UNK
     Route: 065

REACTIONS (11)
  - Apathy [Unknown]
  - Vomiting [Unknown]
  - Blood pressure increased [Unknown]
  - Delusion [Unknown]
  - Hallucination [Unknown]
  - Aggression [Unknown]
  - Dementia [Unknown]
  - Agitation [Unknown]
  - Nausea [Unknown]
  - Patient elopement [Unknown]
  - Diarrhoea [Unknown]
